FAERS Safety Report 7760080-2 (Version None)
Quarter: 2011Q3

REPORT INFORMATION
  Report Type: 
  Country: None (occurrence: None)
  Receive Date: 20110919
  Receipt Date: 20110914
  Transmission Date: 20111222
  Serious: Yes (Other)
  Sender: FDA-Public Use
  Company Number: US-PFIZER INC-2010132811

PATIENT
  Sex: Female
  Weight: 61.678 kg

DRUGS (5)
  1. SUTENT [Suspect]
     Indication: HEPATIC NEOPLASM MALIGNANT
     Dosage: 50 MG, DAILY
     Route: 048
     Dates: start: 20100831, end: 20100919
  2. LEVOTHYROXINE [Concomitant]
     Indication: THYROIDECTOMY
     Dosage: UNK
  3. SANDOSTATIN [Concomitant]
     Indication: CARCINOID TUMOUR
     Dosage: UNK
  4. SIMVASTATIN [Concomitant]
     Dosage: UNK
  5. VERAPAMIL [Concomitant]
     Indication: BLOOD PRESSURE ABNORMAL
     Dosage: UNK
     Dates: start: 20100101

REACTIONS (7)
  - LETHARGY [None]
  - ABASIA [None]
  - ASTHENIA [None]
  - MOVEMENT DISORDER [None]
  - COGNITIVE DISORDER [None]
  - FATIGUE [None]
  - JAUNDICE [None]
